FAERS Safety Report 4343657-6 (Version None)
Quarter: 2004Q2

REPORT INFORMATION
  Report Type: 
  Country: None (occurrence: None)
  Receive Date: 20040419
  Receipt Date: 20040401
  Transmission Date: 20050107
  Serious: Yes (Hospitalization)
  Sender: FDA-Public Use
  Company Number: 2004GB00816

PATIENT
  Age: 75 Year
  Sex: Female
  Weight: 85 kg

DRUGS (23)
  1. ARIMIDEX [Suspect]
     Indication: BREAST CANCER
     Dosage: 1 MG DAILY PO
     Route: 048
     Dates: start: 19981120, end: 20030317
  2. IBUPROFEN [Concomitant]
  3. CO-CODAMOL [Concomitant]
  4. HYDROCORTISONE [Concomitant]
  5. SIMVASTATIN [Concomitant]
  6. HUMULIN [Concomitant]
  7. ERYTHROMYCIN [Concomitant]
  8. METRONIDAZOLE [Concomitant]
  9. DICLOFENAC SODIUM [Concomitant]
  10. ACETAMINOPHEN [Concomitant]
  11. NYSTATIN [Concomitant]
  12. KAPAKE [Concomitant]
  13. ISPAGHULA HUSK [Concomitant]
  14. CAPSAICIN [Concomitant]
  15. GABAPENTIN [Concomitant]
  16. TRITACE [Concomitant]
  17. CLOTRIMAZOLE [Concomitant]
  18. DICLOFENAC SODIUM [Concomitant]
  19. LOPERAMIDE HCL [Concomitant]
  20. INSULIN NORDISK MIXTARD (PORK) [Concomitant]
  21. GABAPENTIN [Concomitant]
  22. CELECOXIB [Concomitant]
  23. RAMIPRIL [Concomitant]

REACTIONS (4)
  - CEREBROSPINAL FLUID LEAKAGE [None]
  - LUMBAR SPINAL STENOSIS [None]
  - NERVE ROOT COMPRESSION [None]
  - PAIN IN EXTREMITY [None]
